FAERS Safety Report 5451848-6 (Version None)
Quarter: 2007Q3

REPORT INFORMATION
  Report Type: 
  Country: None (occurrence: None)
  Receive Date: 20070912
  Receipt Date: 20070828
  Transmission Date: 20080115
  Serious: Yes (Other)
  Sender: FDA-Public Use
  Company Number: 2007RR-09677

PATIENT
  Age: 78 Year

DRUGS (1)
  1. IBUPROFEN [Suspect]
     Dosage: 9.6 G, 16 G

REACTIONS (4)
  - COMA [None]
  - DRUG TOXICITY [None]
  - HYPOTENSION [None]
  - OVERDOSE [None]
